FAERS Safety Report 8612071 (Version 2)
Quarter: 2012Q4

REPORT INFORMATION
  Report Type: 
  Country: DK (occurrence: DK)
  Receive Date: 20120613
  Receipt Date: 20121123
  Transmission Date: 20130627
  Serious: Yes (Hospitalization, Congenital Anomaly)
  Sender: FDA-Public Use
  Company Number: DK-PFIZER INC-2012132098

PATIENT
  Sex: Male

DRUGS (1)
  1. CYTOTEC [Suspect]
     Indication: LABOUR INDUCTION
     Dosage: 25 mg x 3 and 50 mg x 1
     Route: 064
     Dates: start: 20100525, end: 20100527

REACTIONS (2)
  - Foetal exposure during pregnancy [Recovered/Resolved]
  - Blood pH increased [Recovered/Resolved]
